FAERS Safety Report 5403699-6 (Version None)
Quarter: 2007Q3

REPORT INFORMATION
  Report Type: 
  Country: None (occurrence: None)
  Receive Date: 20070713
  Receipt Date: 20070514
  Transmission Date: 20080115
  Serious: Yes (Hospitalization)
  Sender: FDA-Public Use
  Company Number: REM_00348_2007

PATIENT
  Age: 47 Year
  Sex: Female
  Weight: 76.2 kg

DRUGS (13)
  1. REMODULIN [Suspect]
     Indication: PULMONARY HYPERTENSION
     Dosage: 85.5 NG/KG/MIN (0.0855 UG/KG,1 IN 1 MIN),INTRAVENOUS
     Route: 042
     Dates: start: 20070319
  2. REVATIO [Concomitant]
  3. COUMADIN [Concomitant]
  4. LASIX [Concomitant]
  5. SPIRONOLACTONE [Concomitant]
  6. WELLBUTRIN [Concomitant]
  7. ALLOPURINOL [Concomitant]
  8. POTASSIUM CHLORIDE [Concomitant]
  9. VICODIN [Concomitant]
  10. ASCORBIC ACID [Concomitant]
  11. CALCIUM MAGNESIUM [Concomitant]
  12. MORPHINE SULFATE [Concomitant]
  13. ZOFRAN /00955301/ (ONDANSETRON) [Concomitant]

REACTIONS (2)
  - FLUID OVERLOAD [None]
  - RIGHT VENTRICULAR FAILURE [None]
